FAERS Safety Report 23271378 (Version 3)
Quarter: 2023Q4

REPORT INFORMATION
  Report Type: Spontaneous
  Country: JP (occurrence: JP)
  Receive Date: 20231207
  Receipt Date: 20231229
  Transmission Date: 20240109
  Serious: Yes (Death)
  Sender: FDA-Public Use
  Company Number: JP-MSD-2310JPN003372J

PATIENT
  Age: 80 Year
  Sex: Male

DRUGS (1)
  1. CUBICIN [Suspect]
     Active Substance: DAPTOMYCIN
     Indication: Enterococcal infection
     Dosage: UNK
     Route: 041
     Dates: start: 20221029

REACTIONS (3)
  - Condition aggravated [Fatal]
  - Drug resistance [Fatal]
  - Off label use [Unknown]

NARRATIVE: CASE EVENT DATE: 20221029
